FAERS Safety Report 5891553-5 (Version None)
Quarter: 2008Q3

REPORT INFORMATION
  Report Type: 
  Country: None (occurrence: None)
  Receive Date: 20080918
  Receipt Date: 20080909
  Transmission Date: 20090109
  Serious: Yes (Death)
  Sender: FDA-Public Use
  Company Number: 20066

PATIENT
  Age: 81 Year
  Sex: Female

DRUGS (4)
  1. CARBOPLATIN [Suspect]
     Indication: OVARIAN CANCER RECURRENT
  2. CORTICOSTEROIDS [Concomitant]
  3. ANTIHISTAMINES [Concomitant]
  4. H2 ANTAGONISTS [Concomitant]
     Indication: DRUG THERAPY

REACTIONS (3)
  - ACUTE CORONARY SYNDROME [None]
  - CARDIAC ARREST [None]
  - DRUG HYPERSENSITIVITY [None]
